FAERS Safety Report 6332355-5 (Version None)
Quarter: 2009Q3

REPORT INFORMATION
  Report Type: 
  Country: None (occurrence: None)
  Receive Date: 20090827
  Receipt Date: 20090827
  Transmission Date: 20100115
  Serious: Yes (Other)
  Sender: FDA-Public Use
  Company Number: None

PATIENT
  Sex: Female
  Weight: 72.5755 kg

DRUGS (1)
  1. AMPHETAMINES [Suspect]
     Indication: ATTENTION DEFICIT/HYPERACTIVITY DISORDER
     Dosage: 20 MG 2X DAILY PO
     Route: 048
     Dates: start: 20090601, end: 20090820

REACTIONS (13)
  - ABNORMAL BEHAVIOUR [None]
  - ALOPECIA [None]
  - ANXIETY [None]
  - CHEST PAIN [None]
  - CONSTIPATION [None]
  - HUNGER [None]
  - HYPOPHAGIA [None]
  - INSOMNIA [None]
  - MANIA [None]
  - PALPITATIONS [None]
  - STRESS [None]
  - URINARY TRACT INFECTION [None]
  - WEIGHT DECREASED [None]
